FAERS Safety Report 10028776 (Version 2)
Quarter: 2014Q2

REPORT INFORMATION
  Report Type: Report from Study
  Country: US (occurrence: US)
  Receive Date: 20140321
  Receipt Date: 20140620
  Transmission Date: 20141212
  Serious: Yes (Death, Hospitalization)
  Sender: FDA-Public Use
  Company Number: US-BAYER-2014-038522

PATIENT
  Age: 69 Year
  Sex: Female
  Weight: 99.77 kg

DRUGS (7)
  1. ADEMPAS [Suspect]
     Indication: PULMONARY HYPERTENSION
     Dosage: 0.5 MG, TID
     Dates: start: 20140109, end: 201402
  2. ADVAIR [Concomitant]
     Dosage: 250/50 BID
     Route: 055
  3. SPIRIVA [Concomitant]
     Dosage: UNK UNK, QD
     Route: 055
  4. OXYGEN [Concomitant]
     Dosage: 4 LITERS CONT
  5. WARFARIN [Concomitant]
     Dosage: 5 MG, QD
  6. SINGULAIR [Concomitant]
     Dosage: 10 MG, QD
  7. ACULAR [Concomitant]
     Dosage: 1 GTT, RIGHT EYE QID

REACTIONS (2)
  - Cardiac arrest [Fatal]
  - Hospitalisation [None]
